FAERS Safety Report 16842200 (Version 11)
Quarter: 2021Q2

REPORT INFORMATION
  Report Type: Report from Study
  Country: None (occurrence: NL)
  Receive Date: 20190923
  Receipt Date: 20210421
  Transmission Date: 20210716
  Serious: Yes (Hospitalization, Other)
  Sender: FDA-Public Use
  Company Number: NL-ABBVIE-19K-114-2929806-00

PATIENT
  Age: 62 Year
  Sex: Male

DRUGS (19)
  1. DUODOPA [Suspect]
     Active Substance: CARBIDOPA\LEVODOPA
     Dosage: CONTINUOUS DOSE IS DECREASED FROM 4.7 TO 4.5
     Route: 050
  2. DUODOPA [Suspect]
     Active Substance: CARBIDOPA\LEVODOPA
     Dosage: MD: 7.0 ML, CD: 4.5 ML/H, ED: 1.5 ML
     Route: 050
  3. DUODOPA [Suspect]
     Active Substance: CARBIDOPA\LEVODOPA
     Dosage: MD: 7.0 ML, CD: 4.0 ML/H ED: 1.0 ML
     Route: 050
  4. DUODOPA [Suspect]
     Active Substance: CARBIDOPA\LEVODOPA
     Dosage: MD 7.0 ML; CD 5.0 ML/H; ED 1.0 ML, CND: 3.0 ML/H, END: 1.0ML
     Route: 050
  5. DUODOPA [Suspect]
     Active Substance: CARBIDOPA\LEVODOPA
     Dosage: CD: 4.3
     Route: 050
  6. DUODOPA [Suspect]
     Active Substance: CARBIDOPA\LEVODOPA
     Dosage: CD 4.0, ED 1.0, MD 12.0
     Route: 050
  7. DUODOPA [Suspect]
     Active Substance: CARBIDOPA\LEVODOPA
     Dosage: MD 7.5 ML; CD 5.0 ML/H; ED 1.0 ML
     Route: 050
  8. SYMBICORT [Concomitant]
     Active Substance: BUDESONIDE\FORMOTEROL FUMARATE DIHYDRATE
     Indication: PRODUCT USED FOR UNKNOWN INDICATION
  9. DIOVAN [Concomitant]
     Active Substance: VALSARTAN
     Indication: PRODUCT USED FOR UNKNOWN INDICATION
  10. MOVICOLON [Concomitant]
     Active Substance: POLYETHYLENE GLYCOL 3350\POTASSIUM CHLORIDE\SODIUM BICARBONATE\SODIUM CHLORIDE
     Indication: ABNORMAL FAECES
  11. VENTOLIN [Concomitant]
     Active Substance: ALBUTEROL SULFATE
     Indication: PRODUCT USED FOR UNKNOWN INDICATION
  12. MAGNESIUM OXIDE. [Concomitant]
     Active Substance: MAGNESIUM OXIDE
     Indication: PRODUCT USED FOR UNKNOWN INDICATION
  13. FENYLBUTAZON [Concomitant]
     Indication: PRODUCT USED FOR UNKNOWN INDICATION
  14. DUODOPA [Suspect]
     Active Substance: CARBIDOPA\LEVODOPA
     Dosage: MD 6.0 ML, CD 4.3 ML/H, ED 1.0 ML
     Route: 050
     Dates: start: 20190703
  15. DUODOPA [Suspect]
     Active Substance: CARBIDOPA\LEVODOPA
     Indication: PARKINSON^S DISEASE
     Dosage: CONTINUOUS DOSE : 4.7
     Route: 050
  16. DUODOPA [Suspect]
     Active Substance: CARBIDOPA\LEVODOPA
     Dosage: MD: 7.0 ML, CD: 4.8 ML/H ED: 1.5 ML, CND 2.4 ML/H
     Route: 050
  17. MOLAXOLE [Concomitant]
     Active Substance: POLYETHYLENE GLYCOL 3350\POTASSIUM CHLORIDE\SODIUM BICARBONATE\SODIUM CHLORIDE
     Indication: PRODUCT USED FOR UNKNOWN INDICATION
  18. FOSTER [Concomitant]
     Active Substance: BECLOMETHASONE\FORMOTEROL
     Indication: PRODUCT USED FOR UNKNOWN INDICATION
  19. DUODOPA [Suspect]
     Active Substance: CARBIDOPA\LEVODOPA
     Dosage: MD: 7.0 ML, CD: 4.8 ML/H ED: 1.0 ML, CND 2.6 ML/H, END 1.0 ML, ND 0.0 ML
     Route: 050

REACTIONS (45)
  - Immunodeficiency [Unknown]
  - Medical device site vesicles [Recovered/Resolved]
  - Tooth extraction [Not Recovered/Not Resolved]
  - On and off phenomenon [Not Recovered/Not Resolved]
  - Muscle rigidity [Not Recovered/Not Resolved]
  - Retinitis [Not Recovered/Not Resolved]
  - Malaise [Not Recovered/Not Resolved]
  - Extra dose administered [Not Recovered/Not Resolved]
  - Disturbance in attention [Unknown]
  - Post procedural complication [Not Recovered/Not Resolved]
  - Fall [Recovered/Resolved]
  - Dyskinesia [Unknown]
  - Ligament rupture [Recovered/Resolved]
  - Mobility decreased [Recovering/Resolving]
  - Procedural complication [Not Recovered/Not Resolved]
  - Pollakiuria [Not Recovered/Not Resolved]
  - Insomnia [Recovered/Resolved]
  - Stoma site discharge [Unknown]
  - Fluid intake reduced [Not Recovered/Not Resolved]
  - Knee operation [Recovered/Resolved]
  - Visual impairment [Unknown]
  - Device breakage [Unknown]
  - Fibroma [Unknown]
  - Neck pain [Not Recovered/Not Resolved]
  - Decreased appetite [Recovered/Resolved]
  - Hallucination [Not Recovered/Not Resolved]
  - Tooth extraction [Recovered/Resolved]
  - Joint injury [Recovering/Resolving]
  - Cognitive disorder [Unknown]
  - Memory impairment [Not Recovered/Not Resolved]
  - Hypersomnia [Not Recovered/Not Resolved]
  - Therapeutic product effect incomplete [Not Recovered/Not Resolved]
  - Dyskinesia [Recovered/Resolved]
  - Toothache [Recovered/Resolved]
  - Peritonitis [Unknown]
  - Joint range of motion decreased [Not Recovered/Not Resolved]
  - Obsessive-compulsive disorder [Unknown]
  - Infection [Not Recovered/Not Resolved]
  - Limb discomfort [Not Recovered/Not Resolved]
  - Head titubation [Recovering/Resolving]
  - Gait disturbance [Not Recovered/Not Resolved]
  - Nausea [Not Recovered/Not Resolved]
  - Unevaluable event [Unknown]
  - Hypophagia [Not Recovered/Not Resolved]
  - Cognitive disorder [Not Recovered/Not Resolved]

NARRATIVE: CASE EVENT DATE: 201907
